FAERS Safety Report 4664135-0 (Version None)
Quarter: 2005Q2

REPORT INFORMATION
  Report Type: 
  Country: None (occurrence: None)
  Receive Date: 20050516
  Receipt Date: 20050516
  Transmission Date: 20051028
  Serious: Yes (Hospitalization)
  Sender: FDA-Public Use
  Company Number: None

PATIENT
  Age: 64 Year
  Sex: Male
  Weight: 103.4201 kg

DRUGS (12)
  1. ATENOLOL [Suspect]
     Indication: ARRHYTHMIA
     Dosage: 25MG  QD ORAL
     Route: 048
     Dates: start: 20050101, end: 20050221
  2. DIGOXIN [Suspect]
     Indication: ARRHYTHMIA
     Dosage: 0.25MG  QD ORAL
     Route: 048
     Dates: start: 20030115, end: 20050221
  3. DIGOXIN [Suspect]
     Indication: HYPERTENSION
     Dosage: 0.25MG  QD ORAL
     Route: 048
     Dates: start: 20030115, end: 20050221
  4. ASPIRIN [Concomitant]
  5. COLACE [Concomitant]
  6. FOSINOPRIL [Concomitant]
  7. FUROSEMIDE [Concomitant]
  8. HYDROCHLOROTHIAZIDE [Concomitant]
  9. METFORMIN [Concomitant]
  10. OLANZAPINE [Concomitant]
  11. OMEPRAZOLE [Concomitant]
  12. SIMVASTATIN [Concomitant]

REACTIONS (10)
  - ATRIOVENTRICULAR BLOCK SECOND DEGREE [None]
  - BLOOD CREATININE INCREASED [None]
  - DEHYDRATION [None]
  - ELECTROCARDIOGRAM PR PROLONGATION [None]
  - INCORRECT DRUG ADMINISTRATION DURATION [None]
  - NAUSEA [None]
  - RENAL IMPAIRMENT [None]
  - THERAPEUTIC AGENT TOXICITY [None]
  - TREATMENT NONCOMPLIANCE [None]
  - VOMITING [None]
